FAERS Safety Report 18328522 (Version 4)
Quarter: 2020Q4

REPORT INFORMATION
  Report Type: Spontaneous
  Country: CO (occurrence: CO)
  Receive Date: 20200930
  Receipt Date: 20201019
  Transmission Date: 20210113
  Serious: Yes (Life-Threatening)
  Sender: FDA-Public Use
  Company Number: CO-ROCHE-2684230

PATIENT
  Age: 54 Year
  Sex: Male

DRUGS (6)
  1. XOLAIR [Suspect]
     Active Substance: OMALIZUMAB
     Indication: URTICARIA
     Dosage: (IN LEFT ARM)
     Route: 065
  2. OLOPATADINE. [Concomitant]
     Active Substance: OLOPATADINE
     Indication: PRODUCT USED FOR UNKNOWN INDICATION
     Dosage: ONE IN EACH EYE EVERY 24 HOURS
     Route: 047
  3. XOLAIR [Suspect]
     Active Substance: OMALIZUMAB
     Dosage: (TWO OF 150 MG AMPOULES)
     Route: 058
     Dates: start: 20200904
  4. GEMFIBROZIL. [Concomitant]
     Active Substance: GEMFIBROZIL
     Indication: PRODUCT USED FOR UNKNOWN INDICATION
     Dosage: 900 MG, QD
     Route: 065
  5. ALBENDAZOLE. [Concomitant]
     Active Substance: ALBENDAZOLE
     Indication: PRODUCT USED FOR UNKNOWN INDICATION
     Dosage: 200 MG, REPEAT IN 15 DAYS
     Route: 065
  6. XOLAIR [Suspect]
     Active Substance: OMALIZUMAB
     Indication: CHRONIC SPONTANEOUS URTICARIA
     Dosage: (IN RIGHT ARM)
     Route: 065

REACTIONS (37)
  - Neck pain [Unknown]
  - Illness [Unknown]
  - Mood altered [Not Recovered/Not Resolved]
  - Eosinophil count increased [Unknown]
  - Dizziness [Not Recovered/Not Resolved]
  - Rash [Unknown]
  - Abdominal pain upper [Not Recovered/Not Resolved]
  - Discomfort [Not Recovered/Not Resolved]
  - Agitation [Unknown]
  - Ocular hyperaemia [Unknown]
  - Dyspnoea [Unknown]
  - Choking [Unknown]
  - Nuchal rigidity [Unknown]
  - Insomnia [Unknown]
  - Contusion [Not Recovered/Not Resolved]
  - Gait disturbance [Not Recovered/Not Resolved]
  - Anaphylactic shock [Unknown]
  - Back pain [Unknown]
  - Hypersensitivity [Not Recovered/Not Resolved]
  - Arthralgia [Not Recovered/Not Resolved]
  - Nausea [Unknown]
  - Nervous system disorder [Unknown]
  - Cheilitis [Not Recovered/Not Resolved]
  - Headache [Not Recovered/Not Resolved]
  - Feeling abnormal [Unknown]
  - Head discomfort [Unknown]
  - Anxiety [Unknown]
  - Abscess oral [Not Recovered/Not Resolved]
  - Urticaria [Unknown]
  - Tachycardia [Unknown]
  - Inflammation [Not Recovered/Not Resolved]
  - Chest discomfort [Unknown]
  - Muscle spasms [Unknown]
  - Restlessness [Unknown]
  - Erythema [Unknown]
  - Chest pain [Unknown]
  - Tremor [Unknown]

NARRATIVE: CASE EVENT DATE: 20200904
